FAERS Safety Report 14797356 (Version 3)
Quarter: 2018Q3

REPORT INFORMATION
  Report Type: Spontaneous
  Country: GB (occurrence: GB)
  Receive Date: 20180424
  Receipt Date: 20180820
  Transmission Date: 20181010
  Serious: Yes (Hospitalization, Other)
  Sender: FDA-Public Use
  Company Number: GB-AMGEN-GBRSP2018053786

PATIENT
  Age: 34 Year
  Sex: Female

DRUGS (10)
  1. PLATELETS [Concomitant]
     Active Substance: HUMAN PLATELET, ALLOGENIC
     Indication: IMMUNE THROMBOCYTOPENIC PURPURA
     Dosage: UNK
  2. ROMIPLOSTIM [Suspect]
     Active Substance: ROMIPLOSTIM
     Indication: IMMUNE THROMBOCYTOPENIC PURPURA
     Dosage: 2 MUG/KG, UNK
     Route: 065
  3. IMMUNOGLOBULIN I.V [Concomitant]
     Active Substance: HUMAN IMMUNOGLOBULIN G
     Indication: IMMUNE THROMBOCYTOPENIC PURPURA
     Dosage: 1 G/KG ON CONSECUTIVE DAYS
     Route: 042
  4. IRON [Concomitant]
     Active Substance: IRON
     Indication: ANAEMIA POSTOPERATIVE
     Dosage: UNK
     Route: 042
  5. AZATHIOPRINE. [Suspect]
     Active Substance: AZATHIOPRINE
     Indication: IMMUNOSUPPRESSANT DRUG THERAPY
     Dosage: 50 MG, QD
     Route: 065
  6. RED BLOOD CELLS [Concomitant]
     Active Substance: HUMAN RED BLOOD CELL
     Indication: IMMUNE THROMBOCYTOPENIC PURPURA
     Dosage: UNK
  7. RITUXIMAB. [Concomitant]
     Active Substance: RITUXIMAB
     Indication: IMMUNE THROMBOCYTOPENIC PURPURA
     Dosage: 375 MG/M2, UNK
  8. AZATHIOPRINE. [Suspect]
     Active Substance: AZATHIOPRINE
     Indication: THROMBOCYTOPENIA
     Dosage: 100 MG, QD
     Route: 065
  9. PLASMA [Concomitant]
     Active Substance: HUMAN PLASMA
     Indication: IMMUNE THROMBOCYTOPENIC PURPURA
  10. TRANEXAMIC ACID. [Concomitant]
     Active Substance: TRANEXAMIC ACID
     Indication: IMMUNE THROMBOCYTOPENIC PURPURA
     Dosage: 1 G, UNK
     Route: 042

REACTIONS (4)
  - Cholestasis [Recovered/Resolved]
  - Transaminases increased [Unknown]
  - Maternal exposure during pregnancy [Unknown]
  - Drug ineffective [Unknown]
